FAERS Safety Report 19722078 (Version 2)
Quarter: 2022Q1

REPORT INFORMATION
  Report Type: Spontaneous
  Country: US (occurrence: US)
  Receive Date: 20210819
  Receipt Date: 20220323
  Transmission Date: 20220423
  Serious: Yes (Other)
  Sender: FDA-Public Use
  Company Number: US-PERRIGO-21US010923

PATIENT
  Age: 53 Year
  Sex: Female
  Weight: 61.224 kg

DRUGS (3)
  1. PIPERONYL BUTOXIDE\PYRETHRUM EXTRACT [Suspect]
     Active Substance: PIPERONYL BUTOXIDE\PYRETHRUM EXTRACT
     Indication: Lice infestation
     Dosage: 1 APPLICATION, SINGLE
     Route: 061
     Dates: start: 20210804, end: 20210804
  2. PIPERONYL BUTOXIDE\PYRETHRUM EXTRACT [Suspect]
     Active Substance: PIPERONYL BUTOXIDE\PYRETHRUM EXTRACT
     Indication: Accidental exposure to product
     Dosage: UNKNOWN, SINGLE
     Route: 047
     Dates: start: 20210804, end: 20210804
  3. LISINOPRIL [Concomitant]
     Active Substance: LISINOPRIL
     Indication: Hypertension
     Dosage: 20/25
     Route: 065
     Dates: start: 2011

REACTIONS (10)
  - Blindness transient [Recovered/Resolved]
  - Chemical burns of eye [Not Recovered/Not Resolved]
  - Accidental exposure to product [Recovered/Resolved]
  - Vision blurred [Not Recovered/Not Resolved]
  - Ocular hyperaemia [Recovered/Resolved]
  - Eye swelling [Recovered/Resolved]
  - Swelling face [Recovered/Resolved]
  - Eye infection [Not Recovered/Not Resolved]
  - Eye swelling [Recovered/Resolved]
  - Swelling face [Recovered/Resolved]

NARRATIVE: CASE EVENT DATE: 20210804
